FAERS Safety Report 23091396 (Version 2)
Quarter: 2023Q4

REPORT INFORMATION
  Report Type: Spontaneous
  Country: NZ (occurrence: NZ)
  Receive Date: 20231020
  Receipt Date: 20231225
  Transmission Date: 20240109
  Serious: Yes (Other)
  Sender: FDA-Public Use
  Company Number: NZ-CHIESI-2023CHF03548

PATIENT
  Sex: Female

DRUGS (1)
  1. CUROSURF [Suspect]
     Active Substance: PORACTANT ALFA
     Indication: Product used for unknown indication
     Dosage: UNK
     Route: 038

REACTIONS (3)
  - Pneumonitis chemical [Unknown]
  - Product storage error [Unknown]
  - Expired product administered [Unknown]
